FAERS Safety Report 7699361-X (Version None)
Quarter: 2011Q3

REPORT INFORMATION
  Report Type: 
  Country: None (occurrence: None)
  Receive Date: 20110819
  Receipt Date: 20110808
  Transmission Date: 20111222
  Serious: Yes (Hospitalization, Other)
  Sender: FDA-Public Use
  Company Number: US-BAYER-2011-041778

PATIENT
  Age: 32 Year
  Sex: Female
  Weight: 81.633 kg

DRUGS (7)
  1. SINGULAIR [Concomitant]
     Indication: RHINITIS
     Dosage: UNK
     Dates: start: 20080101, end: 20100101
  2. MULTIVITAMINS WITH MINERALS [MULTIVITAMINS WITH MINERALS] [Concomitant]
  3. FLUTICASONE PROPIONATE [Concomitant]
     Indication: RHINITIS
     Dosage: UNK
     Dates: start: 20080101, end: 20100101
  4. FLEXERIL [Concomitant]
     Indication: BACK PAIN
     Dosage: UNK
     Dates: start: 20070101, end: 20100101
  5. NAPROSYN [Concomitant]
  6. YAZ [Suspect]
     Dosage: UNK
     Dates: start: 20071201, end: 20080501
  7. NSAID'S [Concomitant]

REACTIONS (10)
  - GRAND MAL CONVULSION [None]
  - PAIN [None]
  - ANHEDONIA [None]
  - DEPRESSION [None]
  - TRANSVERSE SINUS THROMBOSIS [None]
  - ANXIETY [None]
  - INJURY [None]
  - EMOTIONAL DISTRESS [None]
  - BRAIN INJURY [None]
  - MENTAL DISORDER [None]
